FAERS Safety Report 24274409 (Version 1)
Quarter: 2024Q3

REPORT INFORMATION
  Report Type: Spontaneous
  Country: AU (occurrence: AU)
  Receive Date: 20240902
  Receipt Date: 20240902
  Transmission Date: 20241017
  Serious: Yes (Other)
  Sender: ASTELLAS
  Company Number: AU-ASTELLAS-2024-AER-001262

PATIENT
  Age: 41 Year
  Sex: Female

DRUGS (2)
  1. VEOZAH [Suspect]
     Active Substance: FEZOLINETANT
     Indication: Menopausal symptoms
     Dosage: ONE TABLET ONCE A DAY
     Route: 065
     Dates: start: 202408, end: 202408
  2. METOCLOPRAMIDE [Concomitant]
     Active Substance: METOCLOPRAMIDE
     Indication: Product used for unknown indication
     Route: 050

REACTIONS (1)
  - Dystonia [Unknown]

NARRATIVE: CASE EVENT DATE: 20240801
